FAERS Safety Report 13706730 (Version 2)
Quarter: 2017Q4

REPORT INFORMATION
  Report Type: Spontaneous
  Country: US (occurrence: US)
  Receive Date: 20170630
  Receipt Date: 20171005
  Transmission Date: 20180320
  Serious: Yes (Other)
  Sender: FDA-Public Use
  Company Number: US-JNJFOC-20170606417

PATIENT
  Age: 6 Year
  Sex: Male

DRUGS (3)
  1. RISPERDAL [Suspect]
     Active Substance: RISPERIDONE
     Indication: OPPOSITIONAL DEFIANT DISORDER
     Dosage: 0.25 MG TO 1 MG
     Route: 048
     Dates: start: 20050510, end: 20050715
  2. RISPERDAL [Suspect]
     Active Substance: RISPERIDONE
     Indication: AFFECTIVE DISORDER
     Dosage: 0.25 MG TO 1 MG
     Route: 048
     Dates: start: 20050510, end: 20050715
  3. RISPERDAL [Suspect]
     Active Substance: RISPERIDONE
     Indication: SENSORY INTEGRATIVE DYSFUNCTION
     Dosage: 0.25 MG TO 1 MG
     Route: 048
     Dates: start: 20050510, end: 20050715

REACTIONS (4)
  - Oromandibular dystonia [Unknown]
  - Off label use [Unknown]
  - Product use in unapproved indication [Unknown]
  - Gynaecomastia [Unknown]

NARRATIVE: CASE EVENT DATE: 20050510
